FAERS Safety Report 4318668-7 (Version None)
Quarter: 2004Q1

REPORT INFORMATION
  Report Type: 
  Country: None (occurrence: None)
  Receive Date: 20040315
  Receipt Date: 20040213
  Transmission Date: 20041129
  Serious: Yes (Life-Threatening, Hospitalization, Disabling)
  Sender: FDA-Public Use
  Company Number: WAES 0309CRI00002

PATIENT
  Age: 32 Year
  Sex: Female
  Weight: 69.8539 kg

DRUGS (3)
  1. CAP APREPITANT 160 MG [Suspect]
     Indication: MAJOR DEPRESSION
     Dosage: 160 MG/DAILY/PO
     Route: 048
     Dates: start: 20020828, end: 20030902
  2. CAP PLACEBO (UNSPECIFIED) UNK [Suspect]
     Dosage: UNK, UNK; PO
     Route: 048
     Dates: start: 20020828, end: 20030902
  3. IBUPROFEN [Concomitant]

REACTIONS (10)
  - ANXIETY [None]
  - CRYING [None]
  - DECREASED INTEREST [None]
  - DEPRESSION [None]
  - INFLUENZA [None]
  - INSOMNIA [None]
  - NAUSEA [None]
  - PANIC ATTACK [None]
  - PSYCHOTIC DISORDER [None]
  - SUICIDAL IDEATION [None]
